FAERS Safety Report 7341539-9 (Version None)
Quarter: 2011Q1

REPORT INFORMATION
  Report Type: 
  Country: None (occurrence: None)
  Receive Date: 20110301
  Receipt Date: 20110217
  Transmission Date: 20110831
  Serious: Yes (Death, Hospitalization, Disabling)
  Sender: FDA-Public Use
  Company Number: 833819

PATIENT
  Sex: Female

DRUGS (1)
  1. VANCOMYCIN [Suspect]
     Indication: PRODUCT USED FOR UNKNOWN INDICATION
     Dates: start: 20080101, end: 20080101

REACTIONS (8)
  - STEVENS-JOHNSON SYNDROME [None]
  - ANXIETY [None]
  - UNEVALUABLE EVENT [None]
  - TOXIC EPIDERMAL NECROLYSIS [None]
  - MULTIPLE INJURIES [None]
  - MENTAL DISORDER [None]
  - ECONOMIC PROBLEM [None]
  - ACTIVITIES OF DAILY LIVING IMPAIRED [None]
